FAERS Safety Report 21436309 (Version 3)
Quarter: 2022Q4

REPORT INFORMATION
  Report Type: Report from Study
  Country: US (occurrence: US)
  Receive Date: 20221010
  Receipt Date: 20221108
  Transmission Date: 20230113
  Serious: Yes (Hospitalization, Other)
  Sender: FDA-Public Use
  Company Number: US-ABBVIE-22K-163-4515205-00

PATIENT
  Sex: Female
  Weight: 136.07 kg

DRUGS (14)
  1. HUMIRA [Suspect]
     Active Substance: ADALIMUMAB
     Indication: Rheumatoid arthritis
     Dosage: FORM STRENGTH: 40
     Route: 058
     Dates: start: 201910, end: 202207
  2. HUMIRA [Suspect]
     Active Substance: ADALIMUMAB
     Indication: Fibromyalgia
     Dosage: FORM STRENGTH: 40
     Route: 058
  3. HUMIRA [Suspect]
     Active Substance: ADALIMUMAB
     Dosage: FORM STRENGTH: 40
     Route: 058
     Dates: start: 202209
  4. HUMIRA [Suspect]
     Active Substance: ADALIMUMAB
     Dosage: FORM STRENGTH: 40
     Route: 058
  5. ATENOLOL [Concomitant]
     Active Substance: ATENOLOL
     Indication: Blood pressure management
     Route: 065
  6. PFIZER-BIONTECH COVID-19 VACCINE [Concomitant]
     Active Substance: TOZINAMERAN
     Indication: COVID-19 immunisation
     Dosage: 1ST DOSE ONCE
     Route: 030
     Dates: start: 20210121, end: 20210121
  7. PFIZER-BIONTECH COVID-19 VACCINE [Concomitant]
     Active Substance: TOZINAMERAN
     Indication: COVID-19 immunisation
     Dosage: 2ND DOSE ONCE
     Route: 030
     Dates: start: 20210211, end: 20210211
  8. PFIZER-BIONTECH COVID-19 VACCINE [Concomitant]
     Active Substance: TOZINAMERAN
     Indication: COVID-19 immunisation
     Dosage: BOOSTER DOSE ONCE
     Route: 030
     Dates: start: 20211031, end: 20211031
  9. PFIZER-BIONTECH COVID-19 VACCINE [Concomitant]
     Active Substance: TOZINAMERAN
     Indication: COVID-19 immunisation
     Dosage: BOOSTER DOSE ONCE
     Route: 030
     Dates: start: 20221014, end: 20221014
  10. CALCIUM\CHOLECALCIFEROL [Concomitant]
     Active Substance: CALCIUM\CHOLECALCIFEROL
     Indication: Supplementation therapy
     Route: 065
  11. FUROSEMIDE [Concomitant]
     Active Substance: FUROSEMIDE
     Indication: Diuretic therapy
     Route: 065
  12. ALBUTEROL [Concomitant]
     Active Substance: ALBUTEROL
     Indication: Asthma
     Route: 065
  13. DULOXETINE [Concomitant]
     Active Substance: DULOXETINE
     Indication: Arthritis
     Route: 065
  14. LEFLUNOMIDE [Concomitant]
     Active Substance: LEFLUNOMIDE
     Indication: Rheumatoid arthritis
     Route: 065

REACTIONS (10)
  - Neoplasm malignant [Recovered/Resolved]
  - Osteoarthritis [Recovered/Resolved]
  - Pneumonia [Recovered/Resolved]
  - Chronic kidney disease [Not Recovered/Not Resolved]
  - Pulmonary mass [Not Recovered/Not Resolved]
  - Spinal osteoarthritis [Recovering/Resolving]
  - Lung neoplasm malignant [Recovered/Resolved]
  - Drug ineffective [Unknown]
  - Shoulder arthroplasty [Unknown]
  - Arthritis [Not Recovered/Not Resolved]

NARRATIVE: CASE EVENT DATE: 20200101
